FAERS Safety Report 7684254-4 (Version None)
Quarter: 2011Q3

REPORT INFORMATION
  Report Type: 
  Country: None (occurrence: None)
  Receive Date: 20110815
  Receipt Date: 20110731
  Transmission Date: 20111222
  Serious: No
  Sender: FDA-Public Use
  Company Number: US-B.I. PHARMACEUTICALS,INC./RIDGEFIELD-2011-BP-18836BP

PATIENT
  Sex: Female

DRUGS (2)
  1. VITAMIN TAB [Concomitant]
     Indication: SUPPLEMENTATION THERAPY
  2. PRADAXA [Suspect]
     Indication: THROMBOSIS PROPHYLAXIS
     Dosage: 150 MG
     Route: 048
     Dates: start: 20110101

REACTIONS (1)
  - DIZZINESS [None]
